FAERS Safety Report 7200843-5 (Version None)
Quarter: 2010Q4

REPORT INFORMATION
  Report Type: 
  Country: None (occurrence: None)
  Receive Date: 20101228
  Receipt Date: 20101224
  Transmission Date: 20110411
  Serious: Yes (Life-Threatening)
  Sender: FDA-Public Use
  Company Number: IT-PFIZER INC-2010179333

PATIENT
  Age: 60 Year
  Sex: Female

DRUGS (7)
  1. TAZOCIN [Suspect]
     Indication: PNEUMONIA BACTERIAL
     Dosage: 4.5 G, UNK
     Route: 042
     Dates: start: 20101203, end: 20101203
  2. CARDURA [Concomitant]
     Indication: HYPERTENSION
  3. DILATREND [Concomitant]
  4. MICARDIS [Concomitant]
  5. ASPIRIN [Concomitant]
  6. LANTUS [Concomitant]
     Dosage: 24 IU, UNK
     Route: 058
  7. NOVORAPID [Concomitant]
     Dosage: 36 IU, UNK

REACTIONS (4)
  - HEADACHE [None]
  - HYPOTENSION [None]
  - OXYGEN SATURATION DECREASED [None]
  - RASH [None]
